FAERS Safety Report 8472220-0 (Version None)
Quarter: 2012Q2

REPORT INFORMATION
  Report Type: 
  Country: None (occurrence: None)
  Receive Date: 20120627
  Receipt Date: 20120615
  Transmission Date: 20120825
  Serious: Yes (Hospitalization)
  Sender: FDA-Public Use
  Company Number: DE-ELI_LILLY_AND_COMPANY-DE201206005523

PATIENT
  Sex: Female

DRUGS (5)
  1. FORTEO [Suspect]
     Indication: OSTEOPOROSIS
     Dosage: UNK, QD
     Route: 058
     Dates: start: 20120427, end: 20120524
  2. CALCIUM [Concomitant]
     Dosage: UNK, UNKNOWN
     Route: 065
  3. LEVOTHYROXINE SODIUM [Concomitant]
     Dosage: UNK, UNKNOWN
     Route: 065
  4. LISINOPRIL [Concomitant]
     Dosage: UNK, UNKNOWN
     Route: 065
  5. ALENDRON MEPHA [Concomitant]
     Dosage: UNK, WEEKLY (1/W)
     Route: 065

REACTIONS (9)
  - PAIN IN EXTREMITY [None]
  - HOSPITALISATION [None]
  - EATING DISORDER [None]
  - DIZZINESS [None]
  - SLEEP DISORDER [None]
  - EYE DISORDER [None]
  - NAUSEA [None]
  - BONE PAIN [None]
  - LACRIMATION INCREASED [None]
